FAERS Safety Report 5298918-3 (Version None)
Quarter: 2007Q2

REPORT INFORMATION
  Report Type: 
  Country: None (occurrence: None)
  Receive Date: 20070412
  Receipt Date: 20070412
  Transmission Date: 20071010
  Serious: Yes (Other)
  Sender: FDA-Public Use
  Company Number: None

PATIENT
  Age: 69 Year
  Sex: Male
  Weight: 90.7194 kg

DRUGS (6)
  1. RISPERDAL [Suspect]
     Indication: SCHIZOPHRENIA
     Dosage: 2MG QHS PO
     Route: 048
     Dates: start: 20060214, end: 20060304
  2. RISPERDAL [Suspect]
     Indication: SCHIZOPHRENIA
     Dosage: 6MG QHS PO
     Route: 048
     Dates: start: 20060304, end: 20061108
  3. MLODIPINE [Concomitant]
  4. METOPROLOL SUCCINATE [Concomitant]
  5. DIVALPROEX SODIUM [Concomitant]
  6. DYAZIDE [Concomitant]

REACTIONS (1)
  - GLYCOSYLATED HAEMOGLOBIN INCREASED [None]
